FAERS Safety Report 18962397 (Version 1)
Quarter: 2021Q1

REPORT INFORMATION
  Report Type: Report from Study
  Country: ES (occurrence: ES)
  Receive Date: 20210303
  Receipt Date: 20210303
  Transmission Date: 20210420
  Serious: Yes (Other)
  Sender: FDA-Public Use
  Company Number: ES-MYLANLABS-2021M1012217

PATIENT

DRUGS (14)
  1. DEXAMETHASONE. [Concomitant]
     Active Substance: DEXAMETHASONE
     Indication: PRODUCT USED FOR UNKNOWN INDICATION
     Dosage: UNK, CYCLE
     Route: 065
  2. VINCRISTINE [Concomitant]
     Active Substance: VINCRISTINE
     Indication: RETINOBLASTOMA
     Dosage: SYSTEMIC CHEMOTHERAPY
     Route: 065
  3. MELPHALAN. [Suspect]
     Active Substance: MELPHALAN
     Indication: RETINOBLASTOMA
     Dosage: 30 MICROGRAM, QW, 0.09ML...
  4. SALINE                             /00075401/ [Concomitant]
     Active Substance: SODIUM CHLORIDE
     Indication: VEHICLE SOLUTION USE
     Dosage: 0.3 MILLILITER, CYCLE
  5. TOBRAMYCIN. [Concomitant]
     Active Substance: TOBRAMYCIN
     Indication: PRODUCT USED FOR UNKNOWN INDICATION
     Dosage: EYE DROPS FOUR TIMES PER ...
     Route: 031
  6. ETOPOSIDE. [Concomitant]
     Active Substance: ETOPOSIDE
     Indication: RETINOBLASTOMA
     Dosage: 3.3 MILLIGRAM/KILOGRAM, CYCLE...
     Route: 065
  7. TOPOTECAN [Concomitant]
     Active Substance: TOPOTECAN HYDROCHLORIDE
     Indication: RETINOBLASTOMA
     Dosage: UNK, CYCLE
  8. MELPHALAN. [Suspect]
     Active Substance: MELPHALAN
     Indication: VITREOUS DISORDER
  9. POVIDONE?IODINE. [Concomitant]
     Active Substance: POVIDONE-IODINE
     Indication: INFECTION PROPHYLAXIS
     Dosage: UNK, CYCLE
     Route: 065
  10. CARBOPLATIN. [Concomitant]
     Active Substance: CARBOPLATIN
     Indication: VITREOUS DISORDER
  11. TOPOTECAN [Concomitant]
     Active Substance: TOPOTECAN HYDROCHLORIDE
     Indication: VITREOUS DISORDER
  12. VINCRISTINE [Concomitant]
     Active Substance: VINCRISTINE
     Indication: VITREOUS DISORDER
  13. ETOPOSIDE. [Concomitant]
     Active Substance: ETOPOSIDE
     Indication: VITREOUS DISORDER
  14. CARBOPLATIN. [Concomitant]
     Active Substance: CARBOPLATIN
     Indication: RETINOBLASTOMA
     Dosage: 333.3 MILLIGRAM/SQ. METER, CYCLE....
     Route: 065

REACTIONS (2)
  - Administration site scar [Unknown]
  - Off label use [Unknown]
